FAERS Safety Report 8979645 (Version 2)
Quarter: 2012Q4

REPORT INFORMATION
  Report Type: 
  Country: GB (occurrence: GB)
  Receive Date: 20121221
  Receipt Date: 20121227
  Transmission Date: 20130627
  Serious: Yes (Other)
  Sender: FDA-Public Use
  Company Number: GB-PFIZER INC-2012319719

PATIENT
  Age: 30 Year
  Sex: Female

DRUGS (4)
  1. VENLAFAXINE HYDROCHLORIDE [Suspect]
     Indication: MOOD DISORDER NOS
     Dosage: 150 mg, UNK
     Route: 065
     Dates: start: 2007
  2. GABAPENTIN [Suspect]
     Indication: BACK PAIN
     Dosage: 600mg, UNK
     Route: 065
     Dates: start: 20120929, end: 20121010
  3. QUETIAPINE FUMARATE [Suspect]
     Indication: INSOMNIA
     Dosage: 100 mg, UNK
     Route: 065
     Dates: start: 2007
  4. VITAMIN B6 [Suspect]
     Dosage: 10mg, UNK
     Route: 065
     Dates: start: 20121010, end: 20121101

REACTIONS (7)
  - Irritability [Recovering/Resolving]
  - Mood swings [Recovering/Resolving]
  - Mood altered [Recovering/Resolving]
  - Headache [Recovering/Resolving]
  - Menstruation delayed [Recovering/Resolving]
  - Off label use [Not Recovered/Not Resolved]
  - Drug ineffective for unapproved indication [Recovering/Resolving]
